FAERS Safety Report 16684279 (Version 2)
Quarter: 2019Q3

REPORT INFORMATION
  Report Type: Spontaneous
  Country: US (occurrence: US)
  Receive Date: 20190808
  Receipt Date: 20190821
  Transmission Date: 20191004
  Serious: Yes (Death)
  Sender: FDA-Public Use
  Company Number: US-PTC THERAPEUTICS, INC.-US-2019PTC001215

PATIENT

DRUGS (2)
  1. EMFLAZA [Suspect]
     Active Substance: DEFLAZACORT
     Indication: BECKER^S MUSCULAR DYSTROPHY
  2. EMFLAZA [Suspect]
     Active Substance: DEFLAZACORT
     Indication: DUCHENNE MUSCULAR DYSTROPHY
     Dosage: 78 MG (ONE 18 MG, TWO 30 MG), QD
     Route: 048
     Dates: start: 20180526, end: 20190729

REACTIONS (4)
  - Aspiration [Fatal]
  - Concussion [Unknown]
  - Fall [Unknown]
  - Nausea [Unknown]
